FAERS Safety Report 14632374 (Version 1)
Quarter: 2018Q1

REPORT INFORMATION
  Report Type: Spontaneous
  Country: US (occurrence: US)
  Receive Date: 20180313
  Receipt Date: 20180313
  Transmission Date: 20180509
  Serious: No
  Sender: FDA-Public Use
  Company Number: US-TEVA-2018-US-860609

PATIENT
  Sex: Male

DRUGS (1)
  1. CIPROFLOXACIN. [Suspect]
     Active Substance: CIPROFLOXACIN
     Dosage: 1000 MILLIGRAM DAILY;
     Route: 065
     Dates: start: 20180212

REACTIONS (3)
  - Musculoskeletal stiffness [Unknown]
  - Musculoskeletal pain [Unknown]
  - Adverse event [Unknown]

NARRATIVE: CASE EVENT DATE: 201802
